FAERS Safety Report 19818081 (Version 1)
Quarter: 2021Q3

REPORT INFORMATION
  Report Type: Spontaneous
  Country: US (occurrence: US)
  Receive Date: 20210911
  Receipt Date: 20210911
  Transmission Date: 20211014
  Serious: No
  Sender: FDA-Public Use
  Company Number: NVSC2021US206495

PATIENT
  Age: 55 Year
  Sex: Male

DRUGS (1)
  1. VOLTAREN [Suspect]
     Active Substance: DICLOFENAC SODIUM
     Indication: BACK PAIN
     Dosage: UNK
     Route: 065
     Dates: start: 20210906, end: 20210906

REACTIONS (2)
  - Product use in unapproved indication [Recovered/Resolved]
  - Drug effective for unapproved indication [Recovered/Resolved]
